FAERS Safety Report 5592827-8 (Version None)
Quarter: 2008Q1

REPORT INFORMATION
  Report Type: 
  Country: None (occurrence: None)
  Receive Date: 20080116
  Receipt Date: 20080107
  Transmission Date: 20080703
  Serious: Yes (Disabling, Other)
  Sender: FDA-Public Use
  Company Number: PHFR2008GB00475

PATIENT
  Age: 76 Year
  Sex: Male
  Weight: 70 kg

DRUGS (9)
  1. PIMECROLIMUS [Suspect]
     Indication: RASH ERYTHEMATOUS
     Dosage: 1 DOSEFORM
     Route: 061
     Dates: start: 20071210, end: 20071218
  2. AMOROLFINE [Concomitant]
     Route: 065
  3. AQUEOUS CREAM [Concomitant]
     Route: 065
  4. ATENOLOL [Concomitant]
     Dosage: 50 MG, BID
     Route: 048
     Dates: start: 19941011
  5. ATORVASTATIN [Concomitant]
     Dosage: 10 MG/DAY
     Route: 048
     Dates: start: 20051026
  6. DILTIAZEM HCL [Concomitant]
     Dosage: 90 MG, BID
     Route: 048
     Dates: start: 19941011
  7. GTN-S [Concomitant]
     Route: 060
     Dates: start: 20031110
  8. ISOSORBIDE DINITRATE [Concomitant]
     Dosage: 60 MG
     Route: 065
  9. SYNALAR-C [Concomitant]
     Route: 065

REACTIONS (1)
  - IRRITABILITY [None]
